FAERS Safety Report 8191911-2 (Version None)
Quarter: 2012Q1

REPORT INFORMATION
  Report Type: 
  Country: None (occurrence: None)
  Receive Date: 20120307
  Receipt Date: 20120227
  Transmission Date: 20120608
  Serious: Yes (Other)
  Sender: FDA-Public Use
  Company Number: PHHY2012BR018129

PATIENT
  Age: 69 Year
  Sex: Female

DRUGS (3)
  1. GALVUS MET [Suspect]
     Indication: DIABETES MELLITUS
     Dosage: 1 DF (850/50MG) QD
  2. DIOVAN HCT [Suspect]
     Indication: HYPERTENSION
     Dosage: 1 DF, QD
  3. GALVUS [Suspect]
     Dosage: 1 DF (50 MG) BID

REACTIONS (4)
  - HEADACHE [None]
  - CARDIAC DISORDER [None]
  - MALAISE [None]
  - NECK PAIN [None]
